FAERS Safety Report 9463505 (Version 2)
Quarter: 2014Q1

REPORT INFORMATION
  Report Type: Spontaneous
  Country: FR (occurrence: FR)
  Receive Date: 20130819
  Receipt Date: 20140120
  Transmission Date: 20141002
  Serious: Yes (Hospitalization, Disabling, Other)
  Sender: FDA-Public Use
  Company Number: FR-009507513-1308FRA005019

PATIENT
  Age: 72 Year
  Sex: Female

DRUGS (3)
  1. FOSAVANCE [Suspect]
     Indication: OSTEOPOROSIS
     Dosage: UNK
     Route: 048
     Dates: start: 20070101, end: 20130716
  2. NORDAZ [Concomitant]
  3. INEGY [Concomitant]

REACTIONS (1)
  - Osteonecrosis [Recovered/Resolved with Sequelae]
